FAERS Safety Report 10429545 (Version 1)
Quarter: 2014Q3

REPORT INFORMATION
  Report Type: Spontaneous
  Country: US (occurrence: None)
  Receive Date: 20140801
  Receipt Date: 20140801
  Transmission Date: 20150326
  Serious: Yes (Other)
  Sender: FDA-Public Use
  Company Number: AEUSA201300216

PATIENT
  Age: 50 Year
  Sex: Female

DRUGS (6)
  1. FENTANYL. [Concomitant]
     Active Substance: FENTANYL
  2. PREMARIN [Concomitant]
     Active Substance: ESTROGENS, CONJUGATED
  3. GAMUNEX-C [Suspect]
     Active Substance: HUMAN IMMUNOGLOBULIN G
     Indication: IMMUNODEFICIENCY COMMON VARIABLE
     Route: 058
     Dates: start: 2011, end: 2013
  4. DEMEROL [Concomitant]
     Active Substance: MEPERIDINE HYDROCHLORIDE
  5. MORPHINE [Concomitant]
     Active Substance: MORPHINE
  6. FLAGYL [Concomitant]
     Active Substance: METRONIDAZOLE\METRONIDAZOLE HYDROCHLORIDE

REACTIONS (1)
  - Anaphylactic reaction [None]

NARRATIVE: CASE EVENT DATE: 20130606
